FAERS Safety Report 21447436 (Version 1)
Quarter: 2022Q4

REPORT INFORMATION
  Report Type: Spontaneous
  Country: DE (occurrence: DE)
  Receive Date: 20221012
  Receipt Date: 20221012
  Transmission Date: 20230112
  Serious: Yes (Hospitalization)
  Sender: FDA-Public Use
  Company Number: DE-ADRED-07829-01

PATIENT
  Age: 67 Year
  Sex: Male
  Weight: 84 kg

DRUGS (13)
  1. CARVEDILOL [Suspect]
     Active Substance: CARVEDILOL
     Indication: Product used for unknown indication
     Dosage: 50 MILLIGRAM DAILY; 25 MG, 1-0-1-0,
  2. INSULIN ASPART [Suspect]
     Active Substance: INSULIN ASPART
     Indication: Product used for unknown indication
     Dosage: 20 DOSAGE FORMS DAILY; 100 IE/ML, 10-0-10-0
  3. INSULIN DETEMIR [Suspect]
     Active Substance: INSULIN DETEMIR
     Indication: Product used for unknown indication
     Dosage: 24 DOSAGE FORMS DAILY; 100 IU/ML, 12-0-0-12, PRE-FILLED SYRINGES
  4. METAMIZOL [Concomitant]
     Active Substance: METAMIZOLE SODIUM
     Indication: Product used for unknown indication
     Dosage: 120 GTT DAILY; 500 MG/ML, 30-30-30-30, DROPS
  5. PANTOPRAZOLE SODIUM [Concomitant]
     Active Substance: PANTOPRAZOLE SODIUM
     Indication: Product used for unknown indication
     Dosage: 40 MILLIGRAM DAILY; 40 MG, 1-0-0-0
  6. MIRTAZAPINE [Concomitant]
     Active Substance: MIRTAZAPINE
     Indication: Product used for unknown indication
     Dosage: 15 MILLIGRAM DAILY; 15 MG, 0-0-0-1
  7. PANGROL 25000 [Concomitant]
     Indication: Product used for unknown indication
     Dosage: 25000 IE, 2-1-2-0,
  8. TORSEMIDE [Concomitant]
     Active Substance: TORSEMIDE
     Indication: Product used for unknown indication
     Dosage: 10 MILLIGRAM DAILY; 10 MG, 1-0-0-0,
  9. AMLODIPINE BESYLATE [Concomitant]
     Active Substance: AMLODIPINE BESYLATE
     Indication: Product used for unknown indication
     Dosage: 5 MILLIGRAM DAILY; 5 MG, 0-0-1-0,
  10. LEVOTHYROXINE SODIUM [Concomitant]
     Active Substance: LEVOTHYROXINE SODIUM
     Indication: Product used for unknown indication
     Dosage: 50 MICROGRAM DAILY; 50 MCG, 1-0-0-0,
  11. CANDESARTAN [Concomitant]
     Active Substance: CANDESARTAN
     Indication: Product used for unknown indication
     Dosage: 32 MILLIGRAM DAILY; 16 MG, 1-0-1-0
  12. TAMSULOSIN [Concomitant]
     Active Substance: TAMSULOSIN
     Indication: Product used for unknown indication
     Dosage: .4 MILLIGRAM DAILY; 0.4 MG, 0-0-1-0,
  13. HYDROMORPHONE [Concomitant]
     Active Substance: HYDROMORPHONE
     Indication: Product used for unknown indication
     Dosage: 16 MILLIGRAM DAILY; 8 MG, 1-0-1-0

REACTIONS (4)
  - Pain in extremity [Unknown]
  - Lack of application site rotation [Unknown]
  - Dyspnoea [Unknown]
  - Product monitoring error [Unknown]
